FAERS Safety Report 24401916 (Version 1)
Quarter: 2024Q4

REPORT INFORMATION
  Report Type: Spontaneous
  Country: US (occurrence: US)
  Receive Date: 20241007
  Receipt Date: 20241007
  Transmission Date: 20250115
  Serious: No
  Sender: DR REDDYS
  Company Number: US-DRL-USA-SPO/USA/24/0013894

PATIENT
  Sex: Male

DRUGS (1)
  1. BUPRENORPHINE AND NALOXONE SUBLINGUAL FILM [Suspect]
     Active Substance: BUPRENORPHINE HYDROCHLORIDE\NALOXONE HYDROCHLORIDE
     Indication: Product used for unknown indication
     Route: 060

REACTIONS (6)
  - Tooth disorder [Unknown]
  - Product use issue [Unknown]
  - Poor quality product administered [Unknown]
  - Product physical issue [Unknown]
  - Product label confusion [Unknown]
  - Dyspepsia [Unknown]
